FAERS Safety Report 7812055-2 (Version None)
Quarter: 2011Q4

REPORT INFORMATION
  Report Type: 
  Country: None (occurrence: None)
  Receive Date: 20111013
  Receipt Date: 20110929
  Transmission Date: 20120403
  Serious: Yes (Death, Hospitalization)
  Sender: FDA-Public Use
  Company Number: GB-ROCHE-GNE324262

PATIENT
  Sex: Female

DRUGS (9)
  1. CANDESARTAN CILEXETIL [Concomitant]
  2. SPIRONOLACTONE [Concomitant]
  3. BISOPROLOL [Concomitant]
  4. WARFARIN SODIUM [Concomitant]
  5. FUROSEMIDE [Concomitant]
  6. PARACETAMOL [Concomitant]
  7. LUCENTIS [Suspect]
     Indication: PRODUCT USED FOR UNKNOWN INDICATION
     Route: 050
     Dates: start: 20100331
  8. SLOZEM [Concomitant]
  9. XALATAN [Concomitant]

REACTIONS (3)
  - B-CELL LYMPHOMA [None]
  - CARDIAC FAILURE CONGESTIVE [None]
  - NAUSEA [None]
